FAERS Safety Report 9169132 (Version 3)
Quarter: 2013Q2

REPORT INFORMATION
  Report Type: Spontaneous
  Country: JP (occurrence: JP)
  Receive Date: 20130318
  Receipt Date: 20130429
  Transmission Date: 20140414
  Serious: Yes (Life-Threatening, Hospitalization)
  Sender: FDA-Public Use
  Company Number: JP-GLAXOSMITHKLINE-B0874226A

PATIENT
  Age: 62 Year
  Sex: Male

DRUGS (2)
  1. SERETIDE (50MCG/250MCG) [Suspect]
     Indication: CHRONIC OBSTRUCTIVE PULMONARY DISEASE
     Dosage: 250MCG TWICE PER DAY
     Route: 055
     Dates: start: 20120921, end: 20130115
  2. TULOBUTEROL [Concomitant]
     Indication: CHRONIC OBSTRUCTIVE PULMONARY DISEASE
     Dosage: 1IUAX PER DAY
     Route: 062
     Dates: start: 20121218, end: 20130115

REACTIONS (19)
  - Adrenocortical insufficiency acute [Recovered/Resolved with Sequelae]
  - Altered state of consciousness [Unknown]
  - Gastric ulcer [Unknown]
  - Depressed level of consciousness [Recovered/Resolved]
  - Unresponsive to stimuli [Unknown]
  - Hypothalamic pituitary adrenal axis suppression [Unknown]
  - Hypoglycaemic encephalopathy [Recovered/Resolved with Sequelae]
  - Hypoglycaemia [Recovered/Resolved with Sequelae]
  - Back pain [Unknown]
  - Faeces discoloured [Unknown]
  - Anaemia [Unknown]
  - Hyponatraemia [Unknown]
  - Respiratory disorder [Unknown]
  - Blood corticotrophin decreased [Unknown]
  - Nervous system disorder [Recovered/Resolved with Sequelae]
  - Dyspnoea [Unknown]
  - Blood urea increased [Unknown]
  - Blood glucose decreased [Unknown]
  - Blood sodium decreased [Unknown]
